FAERS Safety Report 5422671-3 (Version None)
Quarter: 2007Q3

REPORT INFORMATION
  Report Type: 
  Country: None (occurrence: None)
  Receive Date: 20070822
  Receipt Date: 20070810
  Transmission Date: 20080115
  Serious: Yes (Other)
  Sender: FDA-Public Use
  Company Number: US-PFIZER INC-2007067018

PATIENT
  Sex: Female
  Weight: 54 kg

DRUGS (3)
  1. ZOLOFT [Suspect]
     Indication: POSTPARTUM DEPRESSION
  2. SYNTHROID [Concomitant]
  3. MULTIVITAMIN [Concomitant]

REACTIONS (7)
  - BLOOD CHOLESTEROL INCREASED [None]
  - DRUG INEFFECTIVE [None]
  - LOW DENSITY LIPOPROTEIN INCREASED [None]
  - MALAISE [None]
  - NERVOUSNESS [None]
  - OBSESSIVE-COMPULSIVE DISORDER [None]
  - PARKINSON'S DISEASE [None]
